FAERS Safety Report 8617166-X (Version None)
Quarter: 2012Q3

REPORT INFORMATION
  Report Type: 
  Country: None (occurrence: None)
  Receive Date: 20120823
  Receipt Date: 20120820
  Transmission Date: 20120928
  Serious: No
  Sender: FDA-Public Use
  Company Number: US-ASTRAZENECA-2012SE60337

PATIENT
  Age: 4 Year
  Sex: Male
  Weight: 15.9 kg

DRUGS (4)
  1. NEXIUM [Suspect]
     Indication: GASTROOESOPHAGEAL REFLUX DISEASE
     Route: 048
  2. OMEPRAZOLE [Concomitant]
  3. NEXIUM [Suspect]
     Route: 048
  4. SIMETHICONE [Concomitant]

REACTIONS (2)
  - OFF LABEL USE [None]
  - FLATULENCE [None]
